FAERS Safety Report 5636258-0 (Version None)
Quarter: 2008Q1

REPORT INFORMATION
  Report Type: 
  Country: None (occurrence: None)
  Receive Date: 20080220
  Receipt Date: 20080220
  Transmission Date: 20080703
  Serious: Yes (Hospitalization)
  Sender: FDA-Public Use
  Company Number: None

PATIENT
  Sex: Female
  Weight: 103.4201 kg

DRUGS (2)
  1. AMLODIPINE [Suspect]
     Indication: HYPERTENSION
     Dosage: 5MG QD PO
     Route: 048
     Dates: start: 20080206
  2. METOPROLOL TARTRATE [Suspect]
     Indication: HYPERTENSION
     Dosage: 100MG BID PO
     Route: 048
     Dates: start: 20070126

REACTIONS (4)
  - ASTHENIA [None]
  - FLUSHING [None]
  - HYPERTENSION [None]
  - NAUSEA [None]
